FAERS Safety Report 7442414-1 (Version None)
Quarter: 2011Q2

REPORT INFORMATION
  Report Type: 
  Country: None (occurrence: None)
  Receive Date: 20110428
  Receipt Date: 20110421
  Transmission Date: 20111010
  Serious: Yes (Hospitalization)
  Sender: FDA-Public Use
  Company Number: FR-ROCHE-719443

PATIENT
  Sex: Female
  Weight: 66 kg

DRUGS (6)
  1. FOLIC ACID [Concomitant]
     Dates: start: 20091217
  2. CISPLATIN [Suspect]
     Indication: NON-SMALL CELL LUNG CANCER
     Dosage: LAST DOSE PRIOR TO SAE: 03 MARCH 2010
     Route: 042
     Dates: start: 20091230
  3. PEMETREXED [Suspect]
     Indication: NON-SMALL CELL LUNG CANCER
     Dosage: PERMANENTLY DISCONTINUED
     Route: 042
     Dates: start: 20091230, end: 20100616
  4. NICARDIPINE HCL [Concomitant]
     Dates: start: 20100121
  5. BEVACIZUMAB [Suspect]
     Indication: NON-SMALL CELL LUNG CANCER
     Dosage: PERMANENTLY DISCONTINUED
     Route: 042
     Dates: start: 20091230, end: 20100616
  6. MORNIFLUMATE [Concomitant]
     Dates: start: 20100616, end: 20100704

REACTIONS (1)
  - RENAL FAILURE [None]
